FAERS Safety Report 4476537-6 (Version None)
Quarter: 2004Q4

REPORT INFORMATION
  Report Type: 
  Country: None (occurrence: None)
  Receive Date: 20041013
  Receipt Date: 20041006
  Transmission Date: 20050328
  Serious: Yes (Other)
  Sender: FDA-Public Use
  Company Number: 2004075215

PATIENT
  Sex: Female

DRUGS (3)
  1. DILANTIN [Suspect]
     Indication: ILL-DEFINED DISORDER
     Dosage: 300 MG (100 MG, 3 IN 1 D)
  2. WARFARIN SODIUM [Suspect]
     Indication: ILL-DEFINED DISORDER
  3. ACETAMINOPHEN [Suspect]
     Indication: ILL-DEFINED DISORDER

REACTIONS (2)
  - ANTICONVULSANT DRUG LEVEL DECREASED [None]
  - GRAND MAL CONVULSION [None]
